FAERS Safety Report 7776466 (Version 3)
Quarter: 2014Q1

REPORT INFORMATION
  Report Type: Report from Study
  Country: JP (occurrence: JP)
  Receive Date: 20110127
  Receipt Date: 20140319
  Transmission Date: 20141002
  Serious: Yes (Hospitalization)
  Sender: FDA-Public Use
  Company Number: JP-JNJFOC-20110105857

PATIENT
  Age: 71 Year
  Sex: Male
  Weight: 65 kg

DRUGS (13)
  1. REMICADE [Suspect]
     Indication: PSORIASIS
     Route: 042
     Dates: start: 20100427
  2. REMICADE [Suspect]
     Indication: PSORIASIS
     Route: 042
     Dates: start: 20100511
  3. REMICADE [Suspect]
     Indication: PSORIASIS
     Route: 042
     Dates: start: 20100608
  4. REMICADE [Suspect]
     Indication: PSORIASIS
     Route: 042
     Dates: start: 20100803
  5. REMICADE [Suspect]
     Indication: PSORIASIS
     Route: 042
     Dates: start: 20100928
  6. ISCOTIN [Concomitant]
     Indication: ANTIBIOTIC PROPHYLAXIS
     Dates: start: 20100426, end: 20101031
  7. BAKTAR [Concomitant]
     Indication: PROPHYLAXIS
     Dosage: 1 TAB
     Route: 048
     Dates: start: 20100426, end: 20101031
  8. RINDERON- VG [Concomitant]
     Indication: PSORIASIS
     Route: 065
  9. RINDERON- VG [Concomitant]
     Indication: PSORIASIS
     Route: 065
  10. BETNOVAT [Concomitant]
     Indication: PSORIASIS
     Route: 065
  11. BETNOVAT [Concomitant]
     Indication: PSORIASIS
     Route: 065
  12. DIACORT [Concomitant]
     Indication: PSORIASIS
     Route: 065
  13. DIACORT [Concomitant]
     Indication: PSORIASIS
     Route: 065

REACTIONS (1)
  - Pancreatic carcinoma [Recovering/Resolving]
